FAERS Safety Report 6754980-X (Version None)
Quarter: 2010Q2

REPORT INFORMATION
  Report Type: 
  Country: None (occurrence: None)
  Receive Date: 20100602
  Receipt Date: 20100527
  Transmission Date: 20101027
  Serious: Yes (Other)
  Sender: FDA-Public Use
  Company Number: 2010SP029636

PATIENT
  Age: 5 Year
  Sex: Male

DRUGS (2)
  1. DESLORATADINE [Suspect]
     Indication: URTICARIA
     Dosage: 2.5 ML;QD;PO
     Route: 048
     Dates: start: 20100501, end: 20100501
  2. PRIMALAN [Concomitant]

REACTIONS (1)
  - HALLUCINATION [None]
